FAERS Safety Report 4507547-8 (Version None)
Quarter: 2004Q4

REPORT INFORMATION
  Report Type: 
  Country: None (occurrence: None)
  Receive Date: 20041118
  Receipt Date: 20041102
  Transmission Date: 20050328
  Serious: Yes (Hospitalization)
  Sender: FDA-Public Use
  Company Number: 185089

PATIENT
  Age: 26 Year
  Sex: Female
  Weight: 86 kg

DRUGS (4)
  1. AVONEX [Suspect]
     Indication: MULTIPLE SCLEROSIS
     Dosage: 30 MCG QW IM
     Route: 030
     Dates: start: 20010701, end: 20031016
  2. AVONEX [Suspect]
     Indication: MULTIPLE SCLEROSIS
     Dosage: 30 MCG QW IM
     Route: 030
     Dates: start: 20031023
  3. METROPROTOL [Concomitant]
  4. SAROTEN [Concomitant]

REACTIONS (11)
  - ARTHRALGIA [None]
  - AUTOIMMUNE THYROIDITIS [None]
  - JOINT SWELLING [None]
  - LOCAL SWELLING [None]
  - MUSCULOSKELETAL STIFFNESS [None]
  - NERVOUS SYSTEM DISORDER [None]
  - NEURALGIA [None]
  - OEDEMA PERIPHERAL [None]
  - PARVOVIRUS INFECTION [None]
  - PYREXIA [None]
  - RHEUMATOID FACTOR INCREASED [None]
